FAERS Safety Report 7511613-2 (Version None)
Quarter: 2011Q2

REPORT INFORMATION
  Report Type: 
  Country: None (occurrence: None)
  Receive Date: 20110531
  Receipt Date: 20110525
  Transmission Date: 20111010
  Serious: Yes (Hospitalization, Other)
  Sender: FDA-Public Use
  Company Number: US-PFIZER INC-2011051673

PATIENT
  Sex: Male

DRUGS (2)
  1. CHANTIX [Suspect]
     Dosage: STARTER AND CONTINUOUS MONTH PACKS
     Dates: start: 20100701, end: 20100801
  2. CHANTIX [Suspect]
     Indication: SMOKING CESSATION THERAPY
     Dosage: STARTER AND CONTINUOUS MONTH PACKS
     Dates: start: 20080601, end: 20080601

REACTIONS (10)
  - DEPRESSION [None]
  - NIGHTMARE [None]
  - BACK PAIN [None]
  - RIB FRACTURE [None]
  - HEADACHE [None]
  - LOSS OF CONSCIOUSNESS [None]
  - ROAD TRAFFIC ACCIDENT [None]
  - IVTH NERVE PARALYSIS [None]
  - MOOD SWINGS [None]
  - DIPLOPIA [None]
